FAERS Safety Report 8020131-7 (Version None)
Quarter: 2012Q1

REPORT INFORMATION
  Report Type: 
  Country: None (occurrence: None)
  Receive Date: 20120103
  Receipt Date: 20111227
  Transmission Date: 20120608
  Serious: Yes (Hospitalization)
  Sender: FDA-Public Use
  Company Number: US-BAYER-2011-099609

PATIENT
  Age: 19 Year
  Sex: Female
  Weight: 54 kg

DRUGS (3)
  1. YASMIN [Suspect]
     Indication: CONTRACEPTION
     Dosage: UNK
     Dates: start: 20040201, end: 20040801
  2. ADDERALL 5 [Concomitant]
  3. VICODIN [Concomitant]
     Indication: PROCEDURAL PAIN
     Dosage: 1-2 TABLETS EVERY 4 HOURS , PRN
     Dates: start: 20040813, end: 20040819

REACTIONS (7)
  - PULMONARY EMBOLISM [None]
  - PAIN [None]
  - ANXIETY [None]
  - INJURY [None]
  - DYSPNOEA [None]
  - EMOTIONAL DISTRESS [None]
  - DEEP VEIN THROMBOSIS [None]
